FAERS Safety Report 4741487-4 (Version None)
Quarter: 2005Q3

REPORT INFORMATION
  Report Type: 
  Country: None (occurrence: None)
  Receive Date: 20050808
  Receipt Date: 20050510
  Transmission Date: 20060218
  Serious: Yes (Life-Threatening, Hospitalization)
  Sender: FDA-Public Use
  Company Number: 2005FR-00195

PATIENT
  Age: 43 Year
  Sex: Male

DRUGS (3)
  1. IBUPROFEN [Suspect]
     Indication: BACK PAIN
     Dosage: 400 MG
     Route: 048
     Dates: start: 20040101, end: 20050101
  2. PARACETAMOL [Concomitant]
  3. DICLOFENAC [Concomitant]

REACTIONS (3)
  - HAEMATEMESIS [None]
  - HELICOBACTER INFECTION [None]
  - MELAENA [None]
